FAERS Safety Report 14266740 (Version 26)
Quarter: 2019Q1

REPORT INFORMATION
  Report Type: Spontaneous
  Country: CZ (occurrence: CZ)
  Receive Date: 20171211
  Receipt Date: 20190122
  Transmission Date: 20190417
  Serious: Yes (Life-Threatening, Hospitalization)
  Sender: FDA-Public Use
  Company Number: CZ-ROCHE-2035972

PATIENT
  Age: 82 Year
  Sex: Female

DRUGS (70)
  1. MILURIT [Suspect]
     Active Substance: ALLOPURINOL
     Indication: GOUT
     Route: 048
  2. PHENYTOIN. [Suspect]
     Active Substance: PHENYTOIN
     Indication: PARTIAL SEIZURES
     Route: 042
  3. CYNT (CZECH REPUBLIC) [Concomitant]
     Route: 016
  4. VASILIP [Concomitant]
     Active Substance: SIMVASTATIN
     Route: 016
  5. TRITACE [Concomitant]
     Active Substance: RAMIPRIL
     Indication: HYPERTENSION
     Route: 048
  6. PROPOFOL. [Suspect]
     Active Substance: PROPOFOL
     Indication: GENERALISED TONIC-CLONIC SEIZURE
     Route: 065
  7. PHENYTOIN. [Suspect]
     Active Substance: PHENYTOIN
     Indication: SEIZURE
     Route: 065
  8. FLUCONAZOL [Suspect]
     Active Substance: FLUCONAZOLE
     Indication: PNEUMONIA
     Route: 065
  9. AMOXICILLIN TRIHYDRATE [Suspect]
     Active Substance: AMOXICILLIN
     Indication: PNEUMONIA
     Dosage: UNK
     Route: 048
  10. LOKREN [Concomitant]
     Active Substance: BETAXOLOL HYDROCHLORIDE
     Indication: HYPERTENSION
     Route: 048
  11. LOKREN [Concomitant]
     Active Substance: BETAXOLOL HYDROCHLORIDE
     Route: 065
  12. SIMVASTATIN. [Concomitant]
     Active Substance: SIMVASTATIN
     Indication: PRODUCT USED FOR UNKNOWN INDICATION
     Route: 016
  13. VALPROATE [Suspect]
     Active Substance: VALPROIC ACID
     Indication: PARTIAL SEIZURES
  14. VALPROATE [Suspect]
     Active Substance: VALPROIC ACID
     Indication: STATUS EPILEPTICUS
  15. LEVETIRACETAM. [Suspect]
     Active Substance: LEVETIRACETAM
     Indication: SEIZURE
  16. LISALGIL [Suspect]
     Active Substance: METAMIZOLE SODIUM
     Indication: PAIN
     Dosage: UNK
     Route: 048
  17. PROPOFOL. [Suspect]
     Active Substance: PROPOFOL
     Indication: SEIZURE
  18. FLUCONAZOL [Suspect]
     Active Substance: FLUCONAZOLE
     Indication: ANTIFUNGAL TREATMENT
     Route: 065
  19. GLIQUIDONE [Suspect]
     Active Substance: GLIQUIDONE
     Route: 065
  20. VALPROIC ACID. [Suspect]
     Active Substance: VALPROIC ACID
     Indication: GENERALISED TONIC-CLONIC SEIZURE
     Route: 065
  21. GODASAL [Concomitant]
     Active Substance: ASPIRIN\GLYCINE
     Indication: PRODUCT USED FOR UNKNOWN INDICATION
     Route: 048
  22. LERCANIDIPINE [Concomitant]
     Active Substance: LERCANIDIPINE
     Indication: PRODUCT USED FOR UNKNOWN INDICATION
     Route: 065
  23. BETAXOLOL. [Concomitant]
     Active Substance: BETAXOLOL
     Indication: PRODUCT USED FOR UNKNOWN INDICATION
     Route: 065
  24. LEVOTHYROXINE SODIUM. [Concomitant]
     Active Substance: LEVOTHYROXINE SODIUM
     Indication: HYPOTHYROIDISM
     Route: 048
  25. DIAZEPAM. [Concomitant]
     Active Substance: DIAZEPAM
     Indication: HYPERTENSION
     Route: 042
  26. DIAZEPAM. [Suspect]
     Active Substance: DIAZEPAM
     Indication: HYPERTENSION
  27. VALPROATE [Suspect]
     Active Substance: VALPROIC ACID
     Indication: SEIZURE
     Route: 065
  28. PARACETAMOL [Suspect]
     Active Substance: ACETAMINOPHEN
     Indication: PAIN
     Dosage: UNK
     Route: 048
  29. PHENYTOIN. [Suspect]
     Active Substance: PHENYTOIN
     Indication: GENERALISED TONIC-CLONIC SEIZURE
     Route: 042
  30. GLIQUIDONE [Suspect]
     Active Substance: GLIQUIDONE
     Indication: PRODUCT USED FOR UNKNOWN INDICATION
     Route: 016
  31. CYNT (CZECH REPUBLIC) [Concomitant]
     Route: 065
  32. KAPIDIN [Concomitant]
     Active Substance: LERCANIDIPINE HYDROCHLORIDE
     Route: 065
  33. VASILIP [Concomitant]
     Active Substance: SIMVASTATIN
     Indication: HYPERCHOLESTEROLAEMIA
     Route: 048
  34. EUTHYROX [Concomitant]
     Active Substance: LEVOTHYROXINE SODIUM
     Indication: HYPOTHYROIDISM
     Route: 048
  35. EUTHYROX [Concomitant]
     Active Substance: LEVOTHYROXINE SODIUM
     Route: 065
  36. TRITACE [Concomitant]
     Active Substance: RAMIPRIL
     Route: 065
  37. SIMVASTATIN. [Concomitant]
     Active Substance: SIMVASTATIN
     Route: 048
  38. MILURIT [Suspect]
     Active Substance: ALLOPURINOL
     Route: 065
  39. LEVETIRACETAM. [Suspect]
     Active Substance: LEVETIRACETAM
     Indication: PARTIAL SEIZURES
     Route: 042
  40. IBUPROFEN. [Suspect]
     Active Substance: IBUPROFEN
     Route: 065
  41. PARACETAMOL [Suspect]
     Active Substance: ACETAMINOPHEN
     Dosage: UNK
     Route: 065
  42. METAMIZOLE [Suspect]
     Active Substance: METAMIZOLE
     Route: 048
  43. GLURENORM [Suspect]
     Active Substance: GLIQUIDONE
     Route: 065
  44. KAPIDIN [Concomitant]
     Active Substance: LERCANIDIPINE HYDROCHLORIDE
     Route: 016
  45. RAMIPRIL. [Concomitant]
     Active Substance: RAMIPRIL
     Indication: PRODUCT USED FOR UNKNOWN INDICATION
     Route: 048
  46. DIAZEPAM. [Suspect]
     Active Substance: DIAZEPAM
     Indication: PARTIAL SEIZURES
  47. VALPROATE [Suspect]
     Active Substance: VALPROIC ACID
     Indication: GENERALISED TONIC-CLONIC SEIZURE
     Route: 016
  48. LEVETIRACETAM. [Suspect]
     Active Substance: LEVETIRACETAM
     Indication: GENERALISED TONIC-CLONIC SEIZURE
     Route: 042
  49. LISALGIL [Suspect]
     Active Substance: METAMIZOLE SODIUM
     Route: 048
  50. IBUPROFEN. [Suspect]
     Active Substance: IBUPROFEN
     Indication: PAIN
     Route: 048
  51. PROPOFOL. [Suspect]
     Active Substance: PROPOFOL
     Indication: CLONIC CONVULSION
  52. PHENYTOIN. [Suspect]
     Active Substance: PHENYTOIN
     Indication: STATUS EPILEPTICUS
  53. KAPIDIN [Concomitant]
     Active Substance: LERCANIDIPINE HYDROCHLORIDE
     Indication: HYPERTENSION
     Route: 048
  54. GLYCINE. [Concomitant]
     Active Substance: GLYCINE
     Indication: PRODUCT USED FOR UNKNOWN INDICATION
     Route: 065
  55. LOKREN [Concomitant]
     Active Substance: BETAXOLOL HYDROCHLORIDE
     Route: 016
  56. MOXONIDINE [Concomitant]
     Active Substance: MOXONIDINE
     Indication: PRODUCT USED FOR UNKNOWN INDICATION
     Route: 048
  57. ALLOPURINOL. [Suspect]
     Active Substance: ALLOPURINOL
     Indication: PRODUCT USED FOR UNKNOWN INDICATION
     Dosage: UNK
     Route: 065
  58. VALPROATE [Suspect]
     Active Substance: VALPROIC ACID
     Indication: EPILEPSY
     Route: 042
  59. PROPOFOL. [Suspect]
     Active Substance: PROPOFOL
     Indication: EPILEPSY
     Route: 016
  60. GLURENORM [Suspect]
     Active Substance: GLIQUIDONE
     Indication: PRODUCT USED FOR UNKNOWN INDICATION
     Route: 048
  61. BUSCOFEN [Suspect]
     Active Substance: IBUPROFEN SODIUM
     Indication: PAIN
     Route: 048
  62. VALPROIC ACID. [Suspect]
     Active Substance: VALPROIC ACID
     Indication: SEIZURE
     Route: 042
  63. CYNT (CZECH REPUBLIC) [Concomitant]
     Indication: HYPERTENSION
     Route: 048
  64. GODASAL [Concomitant]
     Active Substance: ASPIRIN\GLYCINE
     Route: 065
  65. CEFTRIAXONE SODIUM. [Suspect]
     Active Substance: CEFTRIAXONE SODIUM
     Indication: PNEUMONIA
     Dosage: UNK
     Route: 048
  66. DIAZEPAM. [Suspect]
     Active Substance: DIAZEPAM
     Indication: GENERALISED TONIC-CLONIC SEIZURE
     Route: 065
  67. METAMIZOLE [Suspect]
     Active Substance: METAMIZOLE
     Indication: PAIN
     Dosage: UNK
     Route: 048
  68. VALPROIC ACID. [Suspect]
     Active Substance: VALPROIC ACID
     Indication: PARTIAL SEIZURES
     Route: 042
  69. VASILIP [Concomitant]
     Active Substance: SIMVASTATIN
     Route: 065
  70. ACETYLSALICYLIC ACID [Concomitant]
     Active Substance: ASPIRIN
     Indication: PRODUCT USED FOR UNKNOWN INDICATION
     Route: 065

REACTIONS (8)
  - Drug ineffective [Unknown]
  - Pneumonia [Recovering/Resolving]
  - Depressed level of consciousness [Recovering/Resolving]
  - Rash [Recovered/Resolved with Sequelae]
  - Skin laceration [Recovered/Resolved with Sequelae]
  - Status epilepticus [Recovering/Resolving]
  - Sopor [Recovering/Resolving]
  - Stevens-Johnson syndrome [Recovered/Resolved with Sequelae]
